FAERS Safety Report 14244361 (Version 1)
Quarter: 2017Q4

REPORT INFORMATION
  Report Type: Spontaneous
  Country: US (occurrence: US)
  Receive Date: 20171201
  Receipt Date: 20171201
  Transmission Date: 20180321
  Serious: No
  Sender: FDA-Public Use
  Company Number: US-PERRIGO-16US023296

PATIENT
  Age: 67 Year
  Sex: Female
  Weight: 41.72 kg

DRUGS (3)
  1. CLOTRIMAZOLE. [Suspect]
     Active Substance: CLOTRIMAZOLE
     Indication: CANDIDA INFECTION
     Dosage: 10 MG, QID
     Route: 002
     Dates: start: 201605, end: 201605
  2. CLOTRIMAZOLE. [Suspect]
     Active Substance: CLOTRIMAZOLE
     Dosage: 10 MG, QID
     Route: 048
     Dates: start: 201612, end: 201612
  3. CYTOMEL [Concomitant]
     Active Substance: LIOTHYRONINE SODIUM
     Indication: THYROID DISORDER
     Dosage: UNKNOWN, UNKNOWN
     Route: 065

REACTIONS (3)
  - Inappropriate schedule of drug administration [Recovered/Resolved]
  - Drug ineffective [Unknown]
  - Thirst [Recovered/Resolved]

NARRATIVE: CASE EVENT DATE: 201605
